FAERS Safety Report 12676730 (Version 3)
Quarter: 2016Q4

REPORT INFORMATION
  Report Type: Spontaneous
  Country: US (occurrence: US)
  Receive Date: 20160823
  Receipt Date: 20161209
  Transmission Date: 20170207
  Serious: No
  Sender: FDA-Public Use
  Company Number: US-PFIZER INC-2016395301

PATIENT
  Age: 64 Year
  Sex: Female

DRUGS (2)
  1. VICODIN [Suspect]
     Active Substance: ACETAMINOPHEN\HYDROCODONE BITARTRATE
     Dosage: UNK
  2. CEFOXITIN SODIUM [Suspect]
     Active Substance: CEFOXITIN SODIUM
     Dosage: UNK

REACTIONS (1)
  - Drug hypersensitivity [Not Recovered/Not Resolved]

NARRATIVE: CASE EVENT DATE: 20151009
